FAERS Safety Report 8367016-4 (Version None)
Quarter: 2012Q2

REPORT INFORMATION
  Report Type: 
  Country: None (occurrence: None)
  Receive Date: 20120515
  Receipt Date: 20120515
  Transmission Date: 20120825
  Serious: No
  Sender: FDA-Public Use
  Company Number: None

PATIENT
  Age: 57 Year
  Sex: Female

DRUGS (27)
  1. CARVEDILOL [Concomitant]
  2. HYDROCODONE BITARTRATE AND ACETAMINOPHEN [Concomitant]
  3. PREDNISONE [Concomitant]
  4. HYDRALAZINE HCL [Suspect]
     Dates: start: 20100219, end: 20100225
  5. DIAZEPAM [Concomitant]
  6. ESOMEPRAZOLE MAGNESIUM [Concomitant]
  7. GABAPENTIN [Concomitant]
  8. INSULIN GLARGINE [Concomitant]
  9. INSULIN HUMAN [Concomitant]
  10. NIFEDIPINE [Concomitant]
  11. CLOPIDOGREL [Concomitant]
  12. EZETIMIBE [Concomitant]
  13. HYDROCORTISONE [Concomitant]
  14. LEVOTHYROXINE SODIUM [Concomitant]
  15. TRAMADOL HYDROCHLORIDE [Concomitant]
  16. FUROSEMIDE [Concomitant]
  17. ONDANSETRON [Concomitant]
  18. ACETAMINOPHEN [Concomitant]
  19. HYDROMORPHONE HCL [Concomitant]
  20. MORPHINE [Concomitant]
  21. CLONIDINE [Concomitant]
  22. SODIUM POLYSTYRENE SULFONATE [Concomitant]
  23. ASPIRIN [Concomitant]
  24. CYCLOBENZAPRINE [Concomitant]
  25. DIPHENHYDRAMINE HCL [Concomitant]
  26. LOSARTAN POTASSIUM [Concomitant]
  27. PANTOPRAZOLE [Concomitant]

REACTIONS (11)
  - BLOOD CREATININE INCREASED [None]
  - DRUG-INDUCED LIVER INJURY [None]
  - ANTINUCLEAR ANTIBODY INCREASED [None]
  - BLOOD IMMUNOGLOBULIN E INCREASED [None]
  - FATIGUE [None]
  - TREATMENT NONCOMPLIANCE [None]
  - RHABDOMYOLYSIS [None]
  - CHILLS [None]
  - DRUG HYPERSENSITIVITY [None]
  - PRURITUS [None]
  - HEPATIC ENZYME INCREASED [None]
